FAERS Safety Report 13464493 (Version 1)
Quarter: 2017Q2

REPORT INFORMATION
  Report Type: Spontaneous
  Country: US (occurrence: US)
  Receive Date: 20170420
  Receipt Date: 20170420
  Transmission Date: 20170830
  Serious: Yes (Hospitalization, Other)
  Sender: FDA-Public Use
  Company Number: US-ROCHE-672602

PATIENT
  Age: 19 Year
  Sex: Female
  Weight: 59 kg

DRUGS (8)
  1. TETRACYCLINE [Concomitant]
     Active Substance: TETRACYCLINE
     Route: 065
  2. DURICEF [Concomitant]
     Active Substance: CEFADROXIL
     Route: 065
  3. LUVOX [Concomitant]
     Active Substance: FLUVOXAMINE MALEATE
     Route: 065
  4. PROZAC [Concomitant]
     Active Substance: FLUOXETINE HYDROCHLORIDE
     Route: 065
  5. ACCUTANE [Suspect]
     Active Substance: ISOTRETINOIN
     Route: 065
     Dates: start: 199911, end: 20000511
  6. ERYTHROMYCIN. [Concomitant]
     Active Substance: ERYTHROMYCIN
     Route: 065
  7. ACCUTANE [Suspect]
     Active Substance: ISOTRETINOIN
     Indication: ACNE
     Route: 065
  8. ACCUTANE [Suspect]
     Active Substance: ISOTRETINOIN
     Route: 065
     Dates: start: 19991109, end: 199911

REACTIONS (8)
  - Lip dry [Unknown]
  - Epistaxis [Unknown]
  - Depression [Unknown]
  - Oral herpes [Unknown]
  - Dry skin [Unknown]
  - Restlessness [Unknown]
  - Colitis ulcerative [Unknown]
  - Inflammatory bowel disease [Unknown]

NARRATIVE: CASE EVENT DATE: 19991109
